FAERS Safety Report 8857250 (Version 1)
Quarter: 2012Q4

REPORT INFORMATION
  Report Type: 
  Country: US (occurrence: US)
  Receive Date: 20121024
  Receipt Date: 20121024
  Transmission Date: 20130627
  Serious: No
  Sender: FDA-Public Use
  Company Number: US-B.I. PHARMACEUTICALS,INC./RIDGEFIELD-2012-BP-25294BP

PATIENT
  Age: 84 Year
  Sex: Female
  Weight: 57 kg

DRUGS (11)
  1. COMBIVENT [Suspect]
     Indication: CHRONIC OBSTRUCTIVE PULMONARY DISEASE
     Route: 055
     Dates: start: 20120924
  2. VITAMIN C [Concomitant]
     Indication: ANAEMIA
     Dosage: 1000 mg
     Route: 048
     Dates: start: 1975
  3. ALDACTONE [Concomitant]
     Indication: FLUID RETENTION
     Dosage: 25 mg
     Route: 048
     Dates: start: 201207
  4. POTASSIUM [Concomitant]
     Indication: ELECTROLYTE IMBALANCE
     Dosage: 20 mEq
     Route: 048
     Dates: start: 2010
  5. METOPROLOL [Concomitant]
     Indication: ATRIAL FIBRILLATION
     Dosage: 50 mg
     Route: 048
     Dates: start: 2011
  6. PREDNISONE [Concomitant]
     Indication: INFLAMMATION
     Dosage: 5 mg
     Route: 048
     Dates: start: 2007
  7. PREMARIN [Concomitant]
     Indication: ASTHENIA
     Dosage: 0.625 mg
     Route: 048
     Dates: start: 1968
  8. COUMADIN [Concomitant]
     Indication: ATRIAL FIBRILLATION
     Dosage: 2.5 mg
     Route: 048
     Dates: start: 2000
  9. FERROUS GLUCONATE [Concomitant]
     Indication: ANAEMIA
     Dosage: 648 mg
     Route: 048
     Dates: start: 1975
  10. LASIX [Concomitant]
     Indication: CARDIAC FAILURE CONGESTIVE
     Dosage: 120 mg
     Route: 048
     Dates: start: 1975
  11. SIMETHICONE [Concomitant]
     Indication: GASTROOESOPHAGEAL REFLUX DISEASE
     Route: 048
     Dates: start: 1980

REACTIONS (1)
  - Choking [Not Recovered/Not Resolved]
